FAERS Safety Report 5759012-8 (Version None)
Quarter: 2008Q2

REPORT INFORMATION
  Report Type: 
  Country: None (occurrence: None)
  Receive Date: 20080604
  Receipt Date: 20080528
  Transmission Date: 20081010
  Serious: Yes (Congenital Anomaly)
  Sender: FDA-Public Use
  Company Number: FR-ALLERGAN-0806350US

PATIENT
  Sex: Female

DRUGS (3)
  1. ALPHAGAN [Suspect]
     Indication: DRUG EXPOSURE DURING PREGNANCY
     Route: 064
  2. DIAMOX SRC [Suspect]
     Indication: DRUG EXPOSURE DURING PREGNANCY
     Route: 064
  3. CARPILO [Suspect]
     Indication: DRUG EXPOSURE DURING PREGNANCY
     Route: 064

REACTIONS (10)
  - AMYOTROPHY [None]
  - CONGENITAL CENTRAL NERVOUS SYSTEM ANOMALY [None]
  - CONGENITAL FOOT MALFORMATION [None]
  - CONGENITAL HAND MALFORMATION [None]
  - CONGENITAL MUSCLE ABSENCE [None]
  - CONGENITAL MUSCULOSKELETAL ANOMALY [None]
  - HAND DEFORMITY [None]
  - HIP DYSPLASIA [None]
  - IMMOBILE [None]
  - TALIPES [None]
